FAERS Safety Report 7760210-2 (Version None)
Quarter: 2011Q3

REPORT INFORMATION
  Report Type: 
  Country: None (occurrence: None)
  Receive Date: 20110919
  Receipt Date: 20110913
  Transmission Date: 20111222
  Serious: Yes (Hospitalization)
  Sender: FDA-Public Use
  Company Number: US-GLAXOSMITHKLINE-A0894153A

PATIENT
  Sex: Male
  Weight: 117.3 kg

DRUGS (13)
  1. GLUCOPHAGE [Concomitant]
  2. METOPROLOL TARTRATE [Concomitant]
  3. CIALIS [Concomitant]
  4. AVANDIA [Suspect]
     Indication: DIABETES MELLITUS
     Dosage: 4MG PER DAY
     Route: 048
     Dates: start: 20040628, end: 20070101
  5. RANITIDINE [Concomitant]
  6. LOTENSIN [Concomitant]
  7. LOVASTATIN [Concomitant]
  8. GLIPIZIDE [Concomitant]
  9. NITROGLYCERIN [Concomitant]
  10. NORVASC [Concomitant]
  11. PLAVIX [Concomitant]
  12. LOVASTATIN [Concomitant]
  13. ASPIRIN [Concomitant]

REACTIONS (2)
  - MYOCARDIAL INFARCTION [None]
  - CEREBROVASCULAR ACCIDENT [None]
